FAERS Safety Report 7522258-2 (Version None)
Quarter: 2011Q2

REPORT INFORMATION
  Report Type: 
  Country: None (occurrence: None)
  Receive Date: 20110603
  Receipt Date: 20110526
  Transmission Date: 20111010
  Serious: Yes (Other)
  Sender: FDA-Public Use
  Company Number: DE-TEVA-282423GER

PATIENT
  Sex: Female
  Weight: 72 kg

DRUGS (3)
  1. PRAMIPEXOLE DIHYDROCHLORIDE [Suspect]
     Indication: PARKINSON'S DISEASE
     Dosage: .88 MILLIGRAM;
     Route: 048
     Dates: start: 20080702
  2. AZILECT [Suspect]
     Indication: PARKINSON'S DISEASE
     Dosage: 1 MILLIGRAM;
     Route: 048
     Dates: start: 20100401
  3. CARBIDOPA, LEVODOPA AND ENTACAPONE [Concomitant]
     Dates: start: 20100505

REACTIONS (5)
  - BLOOD CORTISOL DECREASED [None]
  - HYPOINSULINAEMIA [None]
  - BLOOD GLUCOSE INCREASED [None]
  - HYPOTONIA [None]
  - DIABETES MELLITUS [None]
